FAERS Safety Report 19232427 (Version 2)
Quarter: 2021Q4

REPORT INFORMATION
  Report Type: Report from Study
  Country: US (occurrence: US)
  Receive Date: 20210507
  Receipt Date: 20211008
  Transmission Date: 20220303
  Serious: Yes (Hospitalization, Other)
  Sender: FDA-Public Use
  Company Number: US-SUN PHARMACEUTICAL INDUSTRIES LTD-2021R1-294572

PATIENT
  Age: 79 Year
  Sex: Female
  Weight: 61.5 kg

DRUGS (22)
  1. BACTRIM [Suspect]
     Active Substance: SULFAMETHOXAZOLE\TRIMETHOPRIM
     Indication: Product used for unknown indication
     Dosage: UNK
     Route: 065
  2. AVELUMAB [Suspect]
     Active Substance: AVELUMAB
     Indication: Product used for unknown indication
     Dosage: 250 MILLILITER, EVERY 2 WEEKS
     Route: 065
     Dates: start: 20210217
  3. PYRIDIUM [Concomitant]
     Active Substance: PHENAZOPYRIDINE
     Indication: Urinary tract disorder
     Dosage: UNK
     Route: 065
     Dates: start: 20210408
  4. BACTRIM DS [Concomitant]
     Active Substance: SULFAMETHOXAZOLE\TRIMETHOPRIM
     Indication: Urinary tract disorder
     Dosage: UNK
     Route: 065
     Dates: start: 20210405, end: 20210410
  5. REQUIP [Concomitant]
     Active Substance: ROPINIROLE HYDROCHLORIDE
     Indication: Restless legs syndrome
     Dosage: UNK
     Route: 065
     Dates: start: 20190417
  6. ULTRAM [Concomitant]
     Active Substance: TRAMADOL HYDROCHLORIDE
     Indication: Pain
     Dosage: UNK
     Route: 065
     Dates: start: 20210405, end: 20210411
  7. TYLENOL [Concomitant]
     Active Substance: ACETAMINOPHEN
     Indication: Pain
     Dosage: UNK
     Route: 065
  8. MICROZIDE [Concomitant]
     Active Substance: HYDROCHLOROTHIAZIDE
     Indication: Hypertension
     Dosage: UNK
     Route: 065
     Dates: start: 20210118
  9. SPIRIVA [Concomitant]
     Active Substance: TIOTROPIUM BROMIDE MONOHYDRATE
     Indication: Chronic obstructive pulmonary disease
     Dosage: UNK
     Route: 065
     Dates: start: 20190729
  10. VISTARIL [Concomitant]
     Active Substance: HYDROXYZINE PAMOATE
     Indication: Anxiety
     Dosage: UNK
     Route: 065
     Dates: start: 20200603, end: 20210411
  11. SANCTURA XR [Concomitant]
     Active Substance: TROSPIUM CHLORIDE
     Indication: Urinary tract disorder
     Dosage: UNK
     Route: 065
     Dates: start: 20200409, end: 20210411
  12. CELEXA [Concomitant]
     Active Substance: CITALOPRAM HYDROBROMIDE
     Indication: Anxiety
     Dosage: UNK
     Route: 065
     Dates: start: 20190407
  13. MINERALS\VITAMINS [Concomitant]
     Active Substance: MINERALS\VITAMINS
     Indication: Product used for unknown indication
     Dosage: UNK
     Route: 065
  14. BACILLUS COAGULANS [Concomitant]
     Active Substance: BACILLUS COAGULANS
     Indication: Product used for unknown indication
     Dosage: UNK
     Route: 065
  15. PRINIVIL [Concomitant]
     Active Substance: LISINOPRIL
     Indication: Hypertension
     Dosage: UNK
     Route: 065
     Dates: start: 20200311
  16. ZESTRIL [Concomitant]
     Active Substance: LISINOPRIL
     Indication: Hypertension
     Dosage: UNK
     Route: 065
     Dates: start: 20200311
  17. LIPITOR [Concomitant]
     Active Substance: ATORVASTATIN CALCIUM
     Indication: Hypercholesterolaemia
     Dosage: UNK
     Route: 065
     Dates: start: 20210303
  18. CEFTRIAXONE [Concomitant]
     Active Substance: CEFTRIAXONE
     Indication: Urinary tract disorder
     Dosage: UNK
     Route: 065
     Dates: start: 20210411, end: 20210411
  19. IMDUR [Concomitant]
     Active Substance: ISOSORBIDE MONONITRATE
     Indication: Angina pectoris
     Dosage: UNK
     Route: 065
     Dates: start: 20201019
  20. PROAIR HFA [Concomitant]
     Active Substance: ALBUTEROL SULFATE
     Indication: Chronic obstructive pulmonary disease
     Dosage: UNK
     Route: 065
     Dates: start: 20190417
  21. ASPIRIN [Concomitant]
     Active Substance: ASPIRIN
     Indication: Product used for unknown indication
     Dosage: UNK
     Route: 065
  22. CALTRATE WITH VITAMIN D [Concomitant]
     Active Substance: CALCIUM CARBONATE\CHOLECALCIFEROL
     Indication: Product used for unknown indication
     Dosage: UNK
     Route: 065

REACTIONS (2)
  - Fatigue [Unknown]
  - Acute kidney injury [Unknown]
